FAERS Safety Report 8805130 (Version 1)
Quarter: 2012Q4

REPORT INFORMATION
  Report Type: 
  Country: US (occurrence: US)
  Receive Date: 20120924
  Receipt Date: 20120924
  Transmission Date: 20130627
  Serious: No
  Sender: FDA-Public Use
  Company Number: US-ALLERGAN-1208807US

PATIENT
  Age: 86 Year
  Sex: Female

DRUGS (6)
  1. LUMIGAN� 0.01% [Suspect]
     Indication: IOP INCREASED
     Dosage: 2 Gtt, qhs
     Route: 047
  2. WARFARIN [Concomitant]
     Indication: DRUG USE FOR UNKNOWN INDICATION
     Dosage: UNK
     Route: 048
  3. METOPROLOL [Concomitant]
     Indication: HYPERTENSION
     Dosage: UNK
     Route: 048
  4. DILANTIN                           /00017401/ [Concomitant]
     Indication: SEIZURES
     Dosage: UNK
     Route: 048
  5. DIURETIC                           /00022001/ [Concomitant]
     Indication: DRUG USE FOR UNKNOWN INDICATION
     Dosage: UNK
     Route: 048
  6. POTASSIUM [Concomitant]
     Indication: NUTRITIONAL SUPPLEMENT
     Dosage: UNK
     Route: 048

REACTIONS (2)
  - Scleral hyperaemia [Recovered/Resolved]
  - Skin hyperpigmentation [Not Recovered/Not Resolved]
